FAERS Safety Report 14958277 (Version 1)
Quarter: 2018Q2

REPORT INFORMATION
  Report Type: Spontaneous
  Country: US (occurrence: US)
  Receive Date: 20180531
  Receipt Date: 20180531
  Transmission Date: 20180711
  Serious: No
  Sender: FDA-Public Use
  Company Number: US-ENDO PHARMACEUTICALS INC-2018-026714

PATIENT
  Sex: Female

DRUGS (2)
  1. SUPPRELIN LA [Suspect]
     Active Substance: HISTRELIN ACETATE
     Indication: PRECOCIOUS PUBERTY
     Dosage: UNK UNKNOWN, FIRST IMPLANT
     Route: 065
  2. SUPPRELIN LA [Suspect]
     Active Substance: HISTRELIN ACETATE
     Dosage: UNK UNKNOWN, SECOND IMPLANT
     Route: 065
     Dates: start: 2017

REACTIONS (1)
  - Vaginal haemorrhage [Unknown]
